FAERS Safety Report 25442743 (Version 1)
Quarter: 2025Q2

REPORT INFORMATION
  Report Type: Spontaneous
  Country: JP (occurrence: JP)
  Receive Date: 20250617
  Receipt Date: 20250617
  Transmission Date: 20250717
  Serious: Yes (Other)
  Sender: MARKSANS PHARMA LIMITED
  Company Number: JP-MARKSANS PHARMA LIMITED-MPL202500065

PATIENT

DRUGS (2)
  1. METFORMIN HYDROCHLORIDE [Suspect]
     Active Substance: METFORMIN HYDROCHLORIDE
     Indication: Neoplasm
     Route: 048
  2. NIVOLUMAB [Suspect]
     Active Substance: NIVOLUMAB
     Indication: Neoplasm
     Route: 042

REACTIONS (2)
  - Pancreatic enzymes increased [Unknown]
  - Lactic acidosis [Unknown]
